FAERS Safety Report 16080885 (Version 2)
Quarter: 2019Q2

REPORT INFORMATION
  Report Type: Spontaneous
  Country: GB (occurrence: GB)
  Receive Date: 20190316
  Receipt Date: 20190406
  Transmission Date: 20190711
  Serious: Yes (Hospitalization, Other)
  Sender: FDA-Public Use
  Company Number: GB-ACCORD-113267

PATIENT
  Age: 8 Year

DRUGS (1)
  1. FUROSEMIDE. [Suspect]
     Active Substance: FUROSEMIDE
     Indication: RENAL SCAN
     Dates: start: 20180910, end: 20180910

REACTIONS (4)
  - Seizure [Unknown]
  - Syncope [Unknown]
  - Malaise [Unknown]
  - Chest pain [Unknown]

NARRATIVE: CASE EVENT DATE: 20180910
